FAERS Safety Report 6940179-0 (Version None)
Quarter: 2010Q3

REPORT INFORMATION
  Report Type: 
  Country: None (occurrence: None)
  Receive Date: 20100825
  Receipt Date: 20100818
  Transmission Date: 20110219
  Serious: Yes (Other)
  Sender: FDA-Public Use
  Company Number: US-PFIZER INC-2010104434

PATIENT
  Sex: Female
  Weight: 64.399 kg

DRUGS (7)
  1. LIPITOR [Suspect]
     Indication: ARTERIAL OCCLUSIVE DISEASE
     Dosage: 40 MG, 1X/DAY
     Route: 048
     Dates: start: 19970101
  2. PLAVIX [Concomitant]
     Indication: STENT PLACEMENT
     Dosage: 75 MG, 1X/DAY
     Route: 048
  3. VALSARTAN [Concomitant]
     Indication: BLOOD PRESSURE ABNORMAL
     Dosage: UNK
     Route: 048
  4. CARDIZEM CD [Concomitant]
     Indication: BLOOD PRESSURE ABNORMAL
     Dosage: 120 MG, 1X/DAY
     Route: 048
  5. TOPROL-XL [Concomitant]
     Indication: BLOOD PRESSURE ABNORMAL
     Dosage: 50 MG, 1X/DAY
     Route: 048
  6. ACETYLSALICYLIC ACID [Concomitant]
     Dosage: 325 MG, 1X/DAY
     Route: 048
  7. ATIVAN [Concomitant]
     Indication: SLEEP DISORDER
     Dosage: 1 MG, 1X/DAY
     Route: 048

REACTIONS (1)
  - STENT PLACEMENT [None]
